FAERS Safety Report 25862687 (Version 3)
Quarter: 2025Q4

REPORT INFORMATION
  Report Type: Spontaneous
  Country: US (occurrence: US)
  Receive Date: 20250930
  Receipt Date: 20251216
  Transmission Date: 20260117
  Serious: Yes (Hospitalization)
  Sender: Unknown Manufacturer
  Company Number: US-HUMACYTE GLOBAL, INC.-US-2025-ATEV-00005

PATIENT

DRUGS (1)
  1. SYMVESS [Suspect]
     Active Substance: ACELLULAR TISSUE ENGINEERED VESSEL
     Indication: Product used for unknown indication
     Dosage: UNK
     Dates: start: 2025

REACTIONS (1)
  - Failure to anastomose [Recovered/Resolved]

NARRATIVE: CASE EVENT DATE: 20250822
